FAERS Safety Report 6389659-X (Version None)
Quarter: 2009Q4

REPORT INFORMATION
  Report Type: 
  Country: None (occurrence: None)
  Receive Date: 20091002
  Receipt Date: 20091002
  Transmission Date: 20100525
  Serious: Yes (Hospitalization)
  Sender: FDA-Public Use
  Company Number: None

PATIENT
  Age: 87 Year
  Sex: Male

DRUGS (1)
  1. FUROSEMIDE [Suspect]
     Indication: CARDIAC FAILURE CONGESTIVE
     Dosage: 20 MG EVERY DAY PO
     Route: 048
     Dates: start: 20080620, end: 20081218

REACTIONS (4)
  - ACUTE PRERENAL FAILURE [None]
  - CONFUSIONAL STATE [None]
  - DEHYDRATION [None]
  - URINARY TRACT INFECTION [None]
